FAERS Safety Report 9037901 (Version 1)
Quarter: 2013Q1

REPORT INFORMATION
  Report Type: Spontaneous
  Country: IT (occurrence: IT)
  Receive Date: 20130129
  Receipt Date: 20130129
  Transmission Date: 20140127
  Serious: Yes (Hospitalization, Other)
  Sender: FDA-Public Use
  Company Number: IT-ELI_LILLY_AND_COMPANY-IT201301005978

PATIENT
  Age: 47 Year
  Sex: Female

DRUGS (5)
  1. ZYPREXA [Suspect]
     Dosage: 2.5 MG, UNK
     Dates: start: 20120101, end: 20130114
  2. RIVOTRIL [Concomitant]
     Dosage: 75 MG, QD
     Route: 048
     Dates: start: 20120101, end: 20130114
  3. EFFEXOR [Concomitant]
     Dosage: 150 MG, QD
     Route: 048
     Dates: start: 20120101, end: 20130114
  4. LAMICTAL [Concomitant]
     Dosage: 1 DF, UNKNOWN
  5. ALCOHOL [Concomitant]
     Dosage: UNK

REACTIONS (2)
  - Toxicity to various agents [Unknown]
  - Coma [Unknown]
